FAERS Safety Report 6731229-5 (Version None)
Quarter: 2010Q2

REPORT INFORMATION
  Report Type: 
  Country: None (occurrence: None)
  Receive Date: 20100517
  Receipt Date: 20100517
  Transmission Date: 20101027
  Serious: Yes (Life-Threatening, Other)
  Sender: FDA-Public Use
  Company Number: None

PATIENT
  Age: 56 Year
  Sex: Female
  Weight: 77.1115 kg

DRUGS (1)
  1. LEVAQUIN [Suspect]
     Indication: RESPIRATORY DISORDER
     Dosage: 1 PER DAY PO
     Route: 048
     Dates: start: 20090708, end: 20090713

REACTIONS (26)
  - ABASIA [None]
  - ANTISOCIAL BEHAVIOUR [None]
  - ARTHRALGIA [None]
  - ARTHROPATHY [None]
  - DEPRESSION [None]
  - DRUG INEFFECTIVE [None]
  - DYSPNOEA [None]
  - FATIGUE [None]
  - FEELING ABNORMAL [None]
  - GALLBLADDER DISORDER [None]
  - GALLBLADDER ENLARGEMENT [None]
  - HEART RATE INCREASED [None]
  - HYPERAESTHESIA [None]
  - INSOMNIA [None]
  - LIVER INJURY [None]
  - MALAISE [None]
  - OROPHARYNGEAL PAIN [None]
  - PAIN [None]
  - PHARYNGEAL DISORDER [None]
  - PYREXIA [None]
  - SPLENOMEGALY [None]
  - TENDONITIS [None]
  - TONSILLAR HAEMORRHAGE [None]
  - UNEVALUABLE EVENT [None]
  - VISION BLURRED [None]
  - VITREOUS FLOATERS [None]
